FAERS Safety Report 4515616-1 (Version None)
Quarter: 2004Q4

REPORT INFORMATION
  Report Type: 
  Country: None (occurrence: None)
  Receive Date: 20041126
  Receipt Date: 20041115
  Transmission Date: 20050328
  Serious: Yes (Hospitalization, Other)
  Sender: FDA-Public Use
  Company Number: 2004094203

PATIENT
  Age: 86 Year
  Sex: Female

DRUGS (12)
  1. AROMASIN [Suspect]
     Indication: BREAST CANCER FEMALE
     Dosage: 25 MG, ORAL
     Route: 048
  2. ALFACALCIDOL (ALFACALCIDOL) [Suspect]
     Indication: ILL-DEFINED DISORDER
     Dosage: 1 MCG, ORAL
     Route: 048
  3. DONEPEZIL HCL [Concomitant]
  4. AMLODIPINE BESYLATE [Concomitant]
  5. LOSARTAN POTASSIUM [Concomitant]
  6. FERROUS CITRATE [Concomitant]
  7. ALFACALCIDOL (ALFACALCIDOL) [Concomitant]
  8. FUROSEMIDE [Concomitant]
  9. ASPIRIN [Concomitant]
  10. TEPRENONE (TEPRENONE) [Concomitant]
  11. MAGNESIUM HYDROXIDE (MAGNESIUM HYDROXIDE) [Concomitant]
  12. ISOSORBIDE DINITRATE [Concomitant]

REACTIONS (3)
  - ANOREXIA [None]
  - HYPERCALCAEMIA [None]
  - LOSS OF CONSCIOUSNESS [None]
